FAERS Safety Report 25753050 (Version 1)
Quarter: 2025Q3

REPORT INFORMATION
  Report Type: Report from Study
  Country: AR (occurrence: AR)
  Receive Date: 20250902
  Receipt Date: 20250902
  Transmission Date: 20251020
  Serious: Yes (Other)
  Sender: ABBVIE
  Company Number: AR-ABBVIE-6441969

PATIENT
  Age: 75 Year
  Sex: Female

DRUGS (1)
  1. RINVOQ [Suspect]
     Active Substance: UPADACITINIB
     Indication: Rheumatoid arthritis
     Dosage: FORM STRENGTH-15MG
     Route: 048
     Dates: start: 20220115

REACTIONS (1)
  - Malignant mediastinal neoplasm [Not Recovered/Not Resolved]

NARRATIVE: CASE EVENT DATE: 20250801
